FAERS Safety Report 15857924 (Version 2)
Quarter: 2019Q1

REPORT INFORMATION
  Report Type: Report from Study
  Country: AU (occurrence: AU)
  Receive Date: 20190123
  Receipt Date: 20190130
  Transmission Date: 20190417
  Serious: Yes (Other)
  Sender: FDA-Public Use
  Company Number: AU-IPSEN BIOPHARMACEUTICALS, INC.-2019-01052

PATIENT
  Age: 71 Year
  Sex: Female

DRUGS (1)
  1. SOMATULINE [Suspect]
     Active Substance: LANREOTIDE ACETATE
     Indication: ACROMEGALY
     Route: 058
     Dates: start: 20180404

REACTIONS (4)
  - Uterine polyp [Recovered/Resolved]
  - Abdominal pain [Not Recovered/Not Resolved]
  - Pyrexia [Unknown]
  - Pollakiuria [Not Recovered/Not Resolved]

NARRATIVE: CASE EVENT DATE: 2018
